FAERS Safety Report 4283767-5 (Version None)
Quarter: 2004Q1

REPORT INFORMATION
  Report Type: 
  Country: None (occurrence: None)
  Receive Date: 20040130
  Receipt Date: 20040130
  Transmission Date: 20041129
  Serious: Yes (Hospitalization)
  Sender: FDA-Public Use
  Company Number: None

PATIENT
  Age: 73 Year
  Sex: Male
  Weight: 104 kg

DRUGS (2)
  1. ATENOLOL [Suspect]
     Indication: CARDIAC DISORDER
     Dosage: 100 MG ORAL
     Route: 048
  2. DILTIAZEM [Suspect]
     Indication: CARDIAC DISORDER
     Dosage: 300 MG BID ORAL
     Route: 048

REACTIONS (2)
  - DYSPNOEA [None]
  - HYPERHIDROSIS [None]
